FAERS Safety Report 4308495-9 (Version None)
Quarter: 2004Q1

REPORT INFORMATION
  Report Type: 
  Country: None (occurrence: None)
  Receive Date: 20040301
  Receipt Date: 20040218
  Transmission Date: 20041129
  Serious: Yes (Life-Threatening)
  Sender: FDA-Public Use
  Company Number: JP-ROCHE-359477

PATIENT
  Age: 59 Year
  Sex: Male

DRUGS (7)
  1. ROCEPHIN [Suspect]
     Indication: INFECTION
     Route: 041
     Dates: start: 20040206, end: 20040206
  2. BASEN [Suspect]
     Indication: DIABETES MELLITUS
     Route: 048
  3. VITAMEDIN [Concomitant]
     Route: 041
     Dates: start: 20040206, end: 20040206
  4. UNKNOWN DRUG [Concomitant]
     Dates: start: 20040206, end: 20040208
  5. KEFRAL [Concomitant]
     Indication: BACTERIAL INFECTION
     Route: 048
     Dates: start: 20040206, end: 20040208
  6. LOXONIN [Concomitant]
     Route: 048
     Dates: start: 20040206, end: 20040208
  7. PL [Concomitant]
     Route: 048
     Dates: start: 20040205, end: 20040208

REACTIONS (4)
  - COMA [None]
  - HAEMODIALYSIS [None]
  - HEPATITIS FULMINANT [None]
  - PLATELET COUNT DECREASED [None]
